FAERS Safety Report 5979592-7 (Version None)
Quarter: 2008Q4

REPORT INFORMATION
  Report Type: 
  Country: None (occurrence: None)
  Receive Date: 20081204
  Receipt Date: 20080915
  Transmission Date: 20090506
  Serious: No
  Sender: FDA-Public Use
  Company Number: US-AMGEN-KDL307799

PATIENT
  Sex: Female

DRUGS (2)
  1. ENBREL [Suspect]
     Indication: ANKYLOSING SPONDYLITIS
     Route: 058
  2. METHOTREXATE [Concomitant]
     Route: 048

REACTIONS (5)
  - BLISTER [None]
  - DEAFNESS UNILATERAL [None]
  - DRY SKIN [None]
  - SINUSITIS [None]
  - SKIN EXFOLIATION [None]
